FAERS Safety Report 5070388-X (Version None)
Quarter: 2006Q3

REPORT INFORMATION
  Report Type: 
  Country: None (occurrence: None)
  Receive Date: 20060802
  Receipt Date: 20060718
  Transmission Date: 20061208
  Serious: Yes (Hospitalization)
  Sender: FDA-Public Use
  Company Number: S06-SWI-03091-01

PATIENT
  Age: 37 Year
  Sex: Male
  Weight: 57 kg

DRUGS (3)
  1. ESCITALOPRAM OXALATE [Suspect]
     Dosage: 5 MG QD PO
     Route: 048
     Dates: start: 20060414, end: 20060722
  2. ESCITALOPRAM OXALATE [Suspect]
     Dosage: 10 MG QD PO
     Route: 048
     Dates: start: 20060408, end: 20060414
  3. PAROXETINE HCL [Suspect]
     Dates: start: 20040723

REACTIONS (3)
  - HAEMATOMA [None]
  - PETECHIAE [None]
  - PLATELET DISORDER [None]
